FAERS Safety Report 21302796 (Version 1)
Quarter: 2022Q3

REPORT INFORMATION
  Report Type: Spontaneous
  Country: ES (occurrence: ES)
  Receive Date: 20220907
  Receipt Date: 20220907
  Transmission Date: 20221026
  Serious: Yes (Other)
  Sender: FDA-Public Use
  Company Number: None

PATIENT
  Age: 80 Year
  Sex: Male

DRUGS (10)
  1. SINEMET [Suspect]
     Active Substance: CARBIDOPA\LEVODOPA
     Indication: Parkinsonism
     Dosage: 1 DOSAGE FORM, TID, 60 TABLETS
     Route: 048
     Dates: start: 20220810
  2. AMLODIPINE [Concomitant]
     Active Substance: AMLODIPINE BESYLATE
     Indication: Hypertension
     Dosage: 1 DOSAGE FORM, QD
     Route: 048
     Dates: start: 20171010
  3. ASPIRIN [Concomitant]
     Active Substance: ASPIRIN
     Indication: Transient ischaemic attack
     Dosage: 1 DOSAGE FORM, QD
     Dates: start: 20170922
  4. ACETAMINOPHEN [Concomitant]
     Active Substance: ACETAMINOPHEN
     Indication: Analgesic therapy
     Dosage: 1 DOSAGE FORM, Q3D, CONCENTRATION:1.000MG
     Route: 048
     Dates: start: 20210527
  5. ATORVASTATIN [Concomitant]
     Active Substance: ATORVASTATIN
     Indication: Hypercholesterolaemia
     Dosage: 1 DOSAGE FORM,  28 TABLETS, QD
     Route: 048
     Dates: start: 20180308
  6. HYDROCHLOROTHIAZIDE\OLMESARTAN MEDOXOMIL [Concomitant]
     Active Substance: HYDROCHLOROTHIAZIDE\OLMESARTAN MEDOXOMIL
     Indication: Hypertension
     Dosage: 1 DOSAGE FORM, QD
     Route: 048
     Dates: start: 20220105
  7. TOPIRAMATE [Concomitant]
     Active Substance: TOPIRAMATE
     Indication: Cognitive disorder
     Dosage: 1 DOSAGE FORM, QD
     Route: 048
     Dates: start: 20201022
  8. ESCITALOPRAM [Concomitant]
     Active Substance: ESCITALOPRAM OXALATE
     Indication: Anxiety
     Dosage: 1 DOSAGE FORM, QD
     Route: 048
     Dates: start: 20220121
  9. TAMSULOSIN [Concomitant]
     Active Substance: TAMSULOSIN
     Indication: Prostatic haemorrhage
     Dosage: FORMULATION REPORTED AS MODIFIED RELEASE CAPSULES, 1 DOSAGE FORM, 30 CAPSULES, QD
     Route: 048
     Dates: start: 20210414
  10. EXELON [Concomitant]
     Active Substance: RIVASTIGMINE TARTRATE
     Indication: Cognitive disorder
     Dosage: 1 DOSAGE FORM, QOD, 112 CAPSULES
     Route: 048
     Dates: start: 20211005

REACTIONS (2)
  - Hypotension [Recovering/Resolving]
  - Bradycardia [Recovering/Resolving]

NARRATIVE: CASE EVENT DATE: 20220811
